FAERS Safety Report 8592860-8 (Version None)
Quarter: 2012Q3

REPORT INFORMATION
  Report Type: 
  Country: None (occurrence: None)
  Receive Date: 20120814
  Receipt Date: 20120730
  Transmission Date: 20120928
  Serious: No
  Sender: FDA-Public Use
  Company Number: US-BAYER-2012-077017

PATIENT
  Age: 65 Year
  Sex: Male
  Weight: 113 kg

DRUGS (6)
  1. CRESTOR [Concomitant]
  2. IRBESARTAN [Concomitant]
  3. ASPIRIN [Concomitant]
  4. ZETIA [Concomitant]
  5. HYDROCHLOROTHIAZIDE [Concomitant]
  6. ALEVE (CAPLET) [Suspect]
     Indication: ANALGESIC THERAPY
     Dosage: 1 DF, QD
     Route: 048
     Dates: start: 20120101

REACTIONS (1)
  - PRURITUS GENERALISED [None]
